FAERS Safety Report 5692144-1 (Version None)
Quarter: 2008Q2

REPORT INFORMATION
  Report Type: 
  Country: None (occurrence: None)
  Receive Date: 20080402
  Receipt Date: 20080325
  Transmission Date: 20081010
  Serious: Yes (Other)
  Sender: FDA-Public Use
  Company Number: A0717353A

PATIENT
  Sex: Male

DRUGS (2)
  1. ARIXTRA [Suspect]
     Route: 058
     Dates: start: 20080301, end: 20080301
  2. ASPIRIN [Concomitant]

REACTIONS (3)
  - BLEEDING TIME PROLONGED [None]
  - DRUG ADMINISTRATION ERROR [None]
  - HAEMORRHAGE [None]
